FAERS Safety Report 9100815 (Version 1)
Quarter: 2013Q1

REPORT INFORMATION
  Report Type: Spontaneous
  Country: FR (occurrence: FR)
  Receive Date: 20130215
  Receipt Date: 20130215
  Transmission Date: 20140127
  Serious: Yes (Hospitalization, Other)
  Sender: FDA-Public Use
  Company Number: FR-009507513-1302FRA003916

PATIENT
  Sex: 0

DRUGS (5)
  1. SINGULAIR [Suspect]
     Dosage: 4 MG, UNK
  2. SINGULAIR [Suspect]
     Dosage: 5 MG, UNK
  3. SINGULAIR [Suspect]
     Dosage: 10 UNK, UNK
  4. SINGULAIR [Suspect]
  5. SINGULAIR [Suspect]

REACTIONS (5)
  - Mental disorder [Unknown]
  - Sleep disorder [Unknown]
  - Abnormal behaviour [Unknown]
  - Hallucination [Unknown]
  - Depression [Unknown]
